FAERS Safety Report 20847060 (Version 1)
Quarter: 2022Q2

REPORT INFORMATION
  Report Type: Other
  Country: GB (occurrence: GB)
  Receive Date: 20220519
  Receipt Date: 20220519
  Transmission Date: 20220720
  Serious: Yes (Other)
  Sender: FDA-Public Use
  Company Number: None

PATIENT

DRUGS (3)
  1. ATOMOXETINE [Suspect]
     Active Substance: ATOMOXETINE
     Indication: Attention deficit hyperactivity disorder
     Dosage: 25 MG, OD
     Route: 048
     Dates: start: 20191108, end: 20191204
  2. PROPRANOLOL [Suspect]
     Active Substance: PROPRANOLOL HYDROCHLORIDE
     Indication: Anxiety
     Dosage: 20 MG, BID
     Route: 048
     Dates: start: 20170701
  3. CONCERTA [Suspect]
     Active Substance: METHYLPHENIDATE HYDROCHLORIDE
     Indication: Attention deficit hyperactivity disorder
     Dosage: 18 MG, OD
     Route: 048
     Dates: start: 20190502, end: 20191105

REACTIONS (6)
  - Cardiovascular insufficiency [Unknown]
  - Visual impairment [Recovering/Resolving]
  - Neuralgia [Unknown]
  - Peripheral coldness [Recovering/Resolving]
  - Chest pain [Recovered/Resolved]
  - Raynaud^s phenomenon [Recovered/Resolved]

NARRATIVE: CASE EVENT DATE: 20180501
